FAERS Safety Report 8579535-6 (Version None)
Quarter: 2012Q3

REPORT INFORMATION
  Report Type: 
  Country: None (occurrence: None)
  Receive Date: 20120731
  Receipt Date: 20120731
  Transmission Date: 20120928
  Serious: Yes (Hospitalization)
  Sender: FDA-Public Use
  Company Number: None

PATIENT
  Sex: Male
  Weight: 47.6 kg

DRUGS (3)
  1. ELOXATIN [Suspect]
     Dosage: 110 MG
  2. FLUOROURACIL [Suspect]
     Dosage: 470 MG
  3. BENZODIAZEPINE [Concomitant]

REACTIONS (5)
  - CHEST PAIN [None]
  - AMNESIA [None]
  - DYSPNOEA [None]
  - DRUG DOSE OMISSION [None]
  - DELIRIUM [None]
